FAERS Safety Report 7583107-X (Version None)
Quarter: 2011Q2

REPORT INFORMATION
  Report Type: 
  Country: None (occurrence: None)
  Receive Date: 20110630
  Receipt Date: 20110112
  Transmission Date: 20111010
  Serious: No
  Sender: FDA-Public Use
  Company Number: US-ASTRAZENECA-2011SE02256

PATIENT
  Sex: Female

DRUGS (1)
  1. ZOLADEX [Suspect]
     Indication: BREAST CANCER
     Route: 058

REACTIONS (3)
  - CELLULITIS [None]
  - INFECTION SUSCEPTIBILITY INCREASED [None]
  - SYSTEMIC LUPUS ERYTHEMATOSUS [None]
